FAERS Safety Report 8844609 (Version 1)
Quarter: 2012Q4

REPORT INFORMATION
  Report Type: Spontaneous
  Country: US (occurrence: None)
  Receive Date: 20121016
  Receipt Date: 20121016
  Transmission Date: 20130627
  Serious: Yes (Hospitalization)
  Sender: FDA-Public Use
  Company Number: None

PATIENT
  Age: 86 Year
  Sex: Female
  Weight: 60 kg

DRUGS (14)
  1. DIGOXIN [Suspect]
     Indication: CONGESTIVE HEART FAILURE
     Route: 048
  2. GLIPIZIDE [Concomitant]
  3. ANASTROZOLE [Concomitant]
  4. FERROUS SULFATE [Concomitant]
  5. PLAVIX [Concomitant]
  6. FLORASTOR [Concomitant]
  7. GLUCOPHAGE [Concomitant]
  8. LISINOPRIL [Concomitant]
  9. TRAZODONE [Concomitant]
  10. LOPRESSOR [Concomitant]
  11. ASA [Concomitant]
  12. VIT B12 [Concomitant]
  13. LASIX [Concomitant]
  14. TYLENOL [Concomitant]

REACTIONS (7)
  - Asthenia [None]
  - Dizziness [None]
  - Palpitations [None]
  - Toxicity to various agents [None]
  - Blood creatinine increased [None]
  - Blood potassium increased [None]
  - Bradycardia [None]
